FAERS Safety Report 5012869-0 (Version None)
Quarter: 2006Q2

REPORT INFORMATION
  Report Type: 
  Country: None (occurrence: None)
  Receive Date: 20060530
  Receipt Date: 20060515
  Transmission Date: 20061013
  Serious: Yes (Other)
  Sender: FDA-Public Use
  Company Number: US-AMGEN-US179603

PATIENT
  Sex: Male
  Weight: 66.7 kg

DRUGS (10)
  1. EPOGEN [Suspect]
     Indication: RENAL FAILURE CHRONIC
     Route: 058
     Dates: start: 20000221, end: 20060511
  2. ARANESP [Suspect]
     Indication: RENAL FAILURE CHRONIC
     Route: 058
     Dates: start: 20050509, end: 20060515
  3. VERAPAMIL [Concomitant]
     Route: 065
  4. FOLIC ACID [Concomitant]
     Route: 065
  5. UNSPECIFIED MEDICATION [Concomitant]
     Route: 065
  6. NEORAL [Concomitant]
     Route: 065
  7. PREDNISONE [Concomitant]
     Route: 065
  8. CALCIUM CARBONATE [Concomitant]
     Route: 065
  9. TOPROL-XL [Concomitant]
     Route: 065
  10. ZANTAC [Concomitant]
     Route: 065

REACTIONS (4)
  - ANAEMIA [None]
  - APLASIA PURE RED CELL [None]
  - BLOOD IRON ABNORMAL [None]
  - HAEMOCHROMATOSIS [None]
